FAERS Safety Report 6730311-6 (Version None)
Quarter: 2010Q2

REPORT INFORMATION
  Report Type: 
  Country: None (occurrence: None)
  Receive Date: 20100518
  Receipt Date: 20100510
  Transmission Date: 20101027
  Serious: Yes (Death, Other)
  Sender: FDA-Public Use
  Company Number: FR-ROCHE-702332

PATIENT
  Age: 48 Year
  Sex: Female

DRUGS (10)
  1. CELLCEPT [Suspect]
     Route: 065
  2. HEPARIN SODIUM [Suspect]
     Indication: DRUG USE FOR UNKNOWN INDICATION
     Route: 065
  3. HEPARIN SODIUM [Suspect]
     Route: 065
  4. HEPARIN SODIUM [Suspect]
     Route: 065
  5. CEFAZOLIN [Suspect]
     Indication: ANTIBIOTIC PROPHYLAXIS
     Route: 065
  6. SOLU-MEDROL [Suspect]
     Route: 065
  7. ACEBUTOLOL [Concomitant]
  8. LYSINE ACETYLSALICYLATE [Concomitant]
  9. PRAVASTATIN [Concomitant]
  10. OMEPRAZOLE [Concomitant]

REACTIONS (15)
  - CYTOMEGALOVIRUS INFECTION [None]
  - EJECTION FRACTION DECREASED [None]
  - HAEMODYNAMIC INSTABILITY [None]
  - HEPARIN-INDUCED THROMBOCYTOPENIA [None]
  - HEPATIC FAILURE [None]
  - MYOCARDIAL INFARCTION [None]
  - PLEURAL EFFUSION [None]
  - RENAL FAILURE [None]
  - TACHYCARDIA [None]
  - TOXOPLASMOSIS [None]
  - TRANSPLANT FAILURE [None]
  - VENA CAVA THROMBOSIS [None]
  - VENOUS THROMBOSIS [None]
  - VENTRICULAR FIBRILLATION [None]
  - VENTRICULAR HYPOKINESIA [None]
